FAERS Safety Report 16138262 (Version 1)
Quarter: 2019Q1

REPORT INFORMATION
  Report Type: Spontaneous
  Country: GB (occurrence: GB)
  Receive Date: 20190330
  Receipt Date: 20190330
  Transmission Date: 20190418
  Serious: Yes (Other)
  Sender: FDA-Public Use
  Company Number: GB-ACCORD-116565

PATIENT
  Age: 20 Year
  Sex: Male

DRUGS (4)
  1. QUETIAPINE. [Suspect]
     Active Substance: QUETIAPINE
     Indication: ANXIETY
     Dosage: ALSO RECEIVED 25 MG FROM 28-NOV-2018
     Route: 048
     Dates: start: 20181204, end: 20181204
  2. SERETIDE [Concomitant]
     Active Substance: FLUTICASONE PROPIONATE\SALMETEROL XINAFOATE
     Dosage: 500. LONG STANDING.
  3. SALBUTAMOL [Concomitant]
     Active Substance: ALBUTEROL
     Dosage: TO BE USED AS DIRECTED. LONG STANDING.
  4. SERTRALINE [Concomitant]
     Active Substance: SERTRALINE HYDROCHLORIDE
     Dosage: HAD INCREASED FROM 25MG TO 100MG. STILL ON SERTRALINE.

REACTIONS (3)
  - Accidental overdose [Unknown]
  - Somnolence [Recovered/Resolved]
  - Bundle branch block right [Recovered/Resolved]

NARRATIVE: CASE EVENT DATE: 20181204
